FAERS Safety Report 9721316 (Version 1)
Quarter: 2013Q4

REPORT INFORMATION
  Report Type: Spontaneous
  Country: US (occurrence: US)
  Receive Date: 20131129
  Receipt Date: 20131129
  Transmission Date: 20140711
  Serious: No
  Sender: FDA-Public Use
  Company Number: US-PFIZER INC-2013339060

PATIENT
  Age: 51 Year
  Sex: Male

DRUGS (1)
  1. RAPAMUNE [Suspect]
     Indication: PULMONARY ARTERIAL HYPERTENSION
     Dosage: 100 MG, 3X/DAY (20MG 5 TABLETS TID)
     Dates: start: 20110708

REACTIONS (2)
  - Off label use [Unknown]
  - Malaise [Unknown]
